FAERS Safety Report 8398692-8 (Version None)
Quarter: 2012Q2

REPORT INFORMATION
  Report Type: 
  Country: None (occurrence: None)
  Receive Date: 20120524
  Receipt Date: 20120514
  Transmission Date: 20120825
  Serious: Yes (Other)
  Sender: FDA-Public Use
  Company Number: 2012SP021872

PATIENT
  Age: 50 Year
  Sex: Female

DRUGS (1)
  1. CELESEMINE (BETAMEHASONE/DEXCHLORPHENIRAMINE MALEATE) (BETAMETHASONE/D [Suspect]
     Indication: URTICARIA
     Dosage: QID; PO
     Route: 048

REACTIONS (4)
  - IDIOPATHIC THROMBOCYTOPENIC PURPURA [None]
  - PLATELET COUNT DECREASED [None]
  - PANCYTOPENIA [None]
  - RED BLOOD CELL COUNT DECREASED [None]
